FAERS Safety Report 5492879-X (Version None)
Quarter: 2007Q4

REPORT INFORMATION
  Report Type: 
  Country: None (occurrence: None)
  Receive Date: 20071019
  Receipt Date: 20071004
  Transmission Date: 20080405
  Serious: Yes (Other)
  Sender: FDA-Public Use
  Company Number: 2007JP004152

PATIENT
  Age: 76 Year
  Sex: Female
  Weight: 39.8 kg

DRUGS (10)
  1. VESICARE [Suspect]
     Indication: HYPERTONIC BLADDER
     Dosage: 2.5 MG, UID/QD, ORAL
     Route: 048
  2. CARVEDILOL [Suspect]
     Indication: HYPERTENSION
     Dosage: 2.5 MG, UID/QD, ORAL
     Route: 048
     Dates: start: 20070726, end: 20070731
  3. RHYTHMY (RILMAZAFONE) [Concomitant]
  4. ASPIRIN [Concomitant]
  5. SIGMART (NICORANDIL) [Concomitant]
  6. LANSOPRAZOLE [Concomitant]
  7. RISEDRONATE SODIUM [Concomitant]
  8. AMLODIPINE BESYLATE [Concomitant]
  9. SELBEX (TEPRENONE) [Concomitant]
  10. ISOSORBIDE MONONITRATE [Concomitant]

REACTIONS (4)
  - BLOOD PRESSURE DECREASED [None]
  - DEHYDRATION [None]
  - DIZZINESS [None]
  - INCORRECT DOSE ADMINISTERED [None]
